FAERS Safety Report 10216087 (Version 2)
Quarter: 2014Q2

REPORT INFORMATION
  Report Type: Report from Study
  Country: BE (occurrence: BE)
  Receive Date: 20140604
  Receipt Date: 20140604
  Transmission Date: 20141212
  Serious: Yes (Hospitalization)
  Sender: FDA-Public Use
  Company Number: BE-ROCHE-1403110

PATIENT
  Age: 79 Year
  Sex: Female
  Weight: 70.5 kg

DRUGS (14)
  1. PACLITAXEL [Suspect]
     Indication: OVARIAN CANCER
     Dosage: LAST DOSE PIROR TO CARDIAC DECOMPENSATION GIVEN ON 07/MAY/2014?LAST DOSE PIROR TO WORSENING OF XEROT
     Route: 042
     Dates: start: 20140122, end: 20140521
  2. SIFROL [Concomitant]
     Route: 065
     Dates: start: 20140320
  3. VOLTAREN RETARD [Concomitant]
     Route: 065
     Dates: start: 20140123
  4. RANITIDINE [Concomitant]
     Route: 065
     Dates: start: 20140403
  5. FURADANTINE [Concomitant]
     Route: 065
     Dates: start: 20140213
  6. VENORUTUN [Concomitant]
     Route: 065
     Dates: start: 20140320
  7. INDOCOLLYRE [Concomitant]
     Route: 065
  8. CARBOMER 980 [Concomitant]
     Route: 065
     Dates: start: 20140430
  9. NYSTATIN [Concomitant]
     Route: 065
  10. TRIAMCINOLONE ACETONIDE [Concomitant]
     Route: 065
     Dates: start: 20140418
  11. ZINC OXIDE [Concomitant]
  12. LASIX [Concomitant]
     Route: 065
     Dates: start: 20140326
  13. PERTUZUMAB [Suspect]
     Indication: OVARIAN CANCER
     Dosage: LOADING DOSE
     Route: 042
     Dates: start: 20140122
  14. PERTUZUMAB [Suspect]
     Dosage: LAST DOSE PRIOR TO SAE WAS GIVEN ON 07/MAY/2014?MAINTAINANCE DOSE
     Route: 042
     Dates: end: 20140521

REACTIONS (2)
  - Eczema asteatotic [Not Recovered/Not Resolved]
  - Cardiac failure [Not Recovered/Not Resolved]
